FAERS Safety Report 9804975 (Version 1)
Quarter: 2014Q1

REPORT INFORMATION
  Report Type: Spontaneous
  Country: US (occurrence: US)
  Receive Date: 20140109
  Receipt Date: 20140109
  Transmission Date: 20141002
  Serious: Yes (Death)
  Sender: FDA-Public Use
  Company Number: US-BAYER-2014-001713

PATIENT
  Age: 24 Year
  Sex: Male

DRUGS (5)
  1. DEXTROMETHORPHAN (ROMILAR, XINLI) +/- GUAIFENESIN [Suspect]
     Route: 048
  2. ETHYLENE GLYCOL [Suspect]
     Route: 048
  3. NIACIN [Suspect]
     Route: 048
  4. AMPHETAMINE SALTS [Suspect]
     Route: 048
  5. SALICYLATE SODIUM [Suspect]

REACTIONS (2)
  - Toxicity to various agents [Fatal]
  - Intentional overdose [Fatal]
